FAERS Safety Report 18869907 (Version 4)
Quarter: 2021Q1

REPORT INFORMATION
  Report Type: Spontaneous
  Country: US (occurrence: US)
  Receive Date: 20210209
  Receipt Date: 20210311
  Transmission Date: 20210420
  Serious: Yes (Hospitalization, Other)
  Sender: FDA-Public Use
  Company Number: US-KARYOPHARM-2021KPT000101

PATIENT

DRUGS (2)
  1. XPOVIO [Suspect]
     Active Substance: SELINEXOR
     Indication: PLASMA CELL MYELOMA
     Dosage: 80 MG, WEEKLY
     Route: 048
     Dates: start: 20210118, end: 202102
  2. DEXAMETHASONE. [Concomitant]
     Active Substance: DEXAMETHASONE
     Indication: PRODUCT USED FOR UNKNOWN INDICATION
     Dosage: 20 MG, WEEKLY
     Route: 048

REACTIONS (15)
  - Bone cancer [Unknown]
  - Fatigue [Unknown]
  - Fall [Unknown]
  - Pyrexia [Unknown]
  - Haematocrit decreased [Unknown]
  - Constipation [Unknown]
  - Drug ineffective [Unknown]
  - Confusional state [Unknown]
  - Haemoglobin decreased [Unknown]
  - Myalgia [Unknown]
  - Incoherent [Unknown]
  - Asthenia [Unknown]
  - Productive cough [Unknown]
  - Platelet count decreased [Unknown]
  - Muscular weakness [Unknown]

NARRATIVE: CASE EVENT DATE: 2021
